FAERS Safety Report 8233339-2 (Version None)
Quarter: 2012Q1

REPORT INFORMATION
  Report Type: 
  Country: None (occurrence: None)
  Receive Date: 20120326
  Receipt Date: 20120321
  Transmission Date: 20120608
  Serious: Yes (Hospitalization)
  Sender: FDA-Public Use
  Company Number: MX-B.I. PHARMACEUTICALS,INC./RIDGEFIELD-2012-MX-00103MX

PATIENT
  Age: 49 Year
  Sex: Male
  Weight: 60 kg

DRUGS (1)
  1. DABIGATRAN ETEXILATE [Suspect]
     Indication: THROMBOSIS PROPHYLAXIS
     Dosage: 110MG EVERY 12 HOURS
     Route: 048
     Dates: start: 20110101

REACTIONS (6)
  - TACHYCARDIA [None]
  - HAEMOPTYSIS [None]
  - PULMONARY EMBOLISM [None]
  - PULMONARY INFARCTION [None]
  - DYSPNOEA [None]
  - CHEST DISCOMFORT [None]
